FAERS Safety Report 12300915 (Version 2)
Quarter: 2016Q2

REPORT INFORMATION
  Report Type: Spontaneous
  Country: AT (occurrence: AT)
  Receive Date: 20160425
  Receipt Date: 20160609
  Transmission Date: 20160815
  Serious: Yes (Hospitalization, Other)
  Sender: FDA-Public Use
  Company Number: AT-JNJFOC-20160416750

PATIENT
  Sex: Female

DRUGS (4)
  1. REGAINE FRAUEN [Suspect]
     Active Substance: MINOXIDIL
     Route: 065
  2. REGAINE FRAUEN [Suspect]
     Active Substance: MINOXIDIL
     Indication: ALOPECIA
     Route: 065
     Dates: start: 201507
  3. ALL OTHER THERAPEUTIC PRODUCTS [Concomitant]
     Active Substance: UNSPECIFIED INGREDIENT
     Indication: PRODUCT USED FOR UNKNOWN INDICATION
     Route: 065
  4. HYALURONIC ACID [Concomitant]
     Active Substance: HYALURONIC ACID
     Indication: ARTHROPATHY
     Route: 065

REACTIONS (3)
  - Lupus-like syndrome [Unknown]
  - Pemphigus [Recovering/Resolving]
  - Nail bed inflammation [Unknown]
